FAERS Safety Report 5875802-5 (Version None)
Quarter: 2008Q3

REPORT INFORMATION
  Report Type: 
  Country: None (occurrence: None)
  Receive Date: 20080909
  Receipt Date: 20080828
  Transmission Date: 20090109
  Serious: Yes (Other)
  Sender: FDA-Public Use
  Company Number: US-PFIZER INC-2006155895

PATIENT
  Sex: Male
  Weight: 88 kg

DRUGS (5)
  1. CHANTIX [Interacting]
     Indication: SMOKING CESSATION THERAPY
     Dates: start: 20061205
  2. XANAX [Interacting]
     Indication: ANXIETY
  3. ZOLOFT [Suspect]
     Indication: DEPRESSION
  4. VIAGRA [Suspect]
     Indication: ERECTILE DYSFUNCTION
     Dates: start: 20080101
  5. METHADONE HCL [Concomitant]

REACTIONS (17)
  - ARTHRALGIA [None]
  - DARK CIRCLES UNDER EYES [None]
  - DEPRESSION [None]
  - DRUG INEFFECTIVE [None]
  - DRUG INTERACTION [None]
  - DYSGEUSIA [None]
  - ERECTILE DYSFUNCTION [None]
  - EYE OEDEMA [None]
  - FATIGUE [None]
  - FEELING ABNORMAL [None]
  - HYPERSOMNIA [None]
  - LISTLESS [None]
  - MALAISE [None]
  - NERVOUSNESS [None]
  - PANIC REACTION [None]
  - SOMNOLENCE [None]
  - VISUAL IMPAIRMENT [None]
